FAERS Safety Report 18377372 (Version 1)
Quarter: 2020Q4

REPORT INFORMATION
  Report Type: Spontaneous
  Country: CA (occurrence: CA)
  Receive Date: 20201013
  Receipt Date: 20201013
  Transmission Date: 20210114
  Serious: Yes (Hospitalization, Other)
  Sender: FDA-Public Use
  Company Number: CA-JNJFOC-20201011808

PATIENT
  Age: 56 Year
  Sex: Female

DRUGS (6)
  1. INFLIXIMAB, RECOMBINANT [Suspect]
     Active Substance: INFLIXIMAB
     Indication: TAKAYASU^S ARTERITIS
     Route: 042
  2. VITAMIN D3 [Concomitant]
     Active Substance: CHOLECALCIFEROL
  3. WARFARIN [Concomitant]
     Active Substance: WARFARIN
  4. LOVENOX [Concomitant]
     Active Substance: ENOXAPARIN SODIUM
     Route: 058
  5. KEPPRA [Concomitant]
     Active Substance: LEVETIRACETAM
     Route: 065
  6. METOPROLOL. [Concomitant]
     Active Substance: METOPROLOL

REACTIONS (11)
  - Neck pain [Unknown]
  - Off label use [Unknown]
  - Musculoskeletal pain [Unknown]
  - International normalised ratio abnormal [Unknown]
  - Chest pain [Unknown]
  - Blood pressure systolic increased [Unknown]
  - Headache [Unknown]
  - Incorrect dose administered [Unknown]
  - Pneumonia [Unknown]
  - Renal neoplasm [Unknown]
  - Product use in unapproved indication [Unknown]
